FAERS Safety Report 5333178-6 (Version None)
Quarter: 2007Q2

REPORT INFORMATION
  Report Type: 
  Country: None (occurrence: None)
  Receive Date: 20070524
  Receipt Date: 20070515
  Transmission Date: 20071010
  Serious: Yes (Other)
  Sender: FDA-Public Use
  Company Number: PHBS2007SE08123

PATIENT
  Age: 43 Year
  Sex: Male

DRUGS (7)
  1. GLEEVEC [Suspect]
     Indication: CHRONIC MYELOID LEUKAEMIA
     Dosage: 400 MG/D
     Route: 048
     Dates: start: 20050301
  2. PREDNISOLONE [Concomitant]
  3. KALCIPOS-D [Concomitant]
  4. LANZOPRAZOL [Concomitant]
  5. ENALAPRIL [Concomitant]
  6. TRIOBE [Concomitant]
  7. NASONEX [Concomitant]

REACTIONS (1)
  - VISUAL ACUITY REDUCED [None]
